FAERS Safety Report 8701460 (Version 2)
Quarter: 2013Q4

REPORT INFORMATION
  Report Type: Spontaneous
  Country: US (occurrence: US)
  Receive Date: 20120802
  Receipt Date: 20131101
  Transmission Date: 20140711
  Serious: No
  Sender: FDA-Public Use
  Company Number: US-009507513-1207USA011319

PATIENT
  Sex: 0

DRUGS (11)
  1. ZOCOR [Suspect]
     Dosage: UNK
     Route: 048
  2. FOSAMAX [Suspect]
     Dosage: UNK
     Route: 048
  3. ENALAPRIL MALEATE [Suspect]
     Dosage: UNK
     Route: 048
  4. PENICILLIN G POTASSIUM [Suspect]
  5. KLONOPIN [Suspect]
  6. CRESTOR [Suspect]
  7. PRAVASTATIN SODIUM [Suspect]
  8. NEURONTIN [Suspect]
  9. PROCARDIA [Suspect]
  10. CODEINE [Suspect]
  11. AMOXICILLIN [Suspect]

REACTIONS (1)
  - Drug hypersensitivity [Unknown]
